FAERS Safety Report 8905345 (Version 1)
Quarter: 2012Q4

REPORT INFORMATION
  Report Type: 
  Country: BR (occurrence: BR)
  Receive Date: 20121112
  Receipt Date: 20121112
  Transmission Date: 20130627
  Serious: Yes (Hospitalization, Other)
  Sender: FDA-Public Use
  Company Number: BR-BRISTOL-MYERS SQUIBB COMPANY-17109893

PATIENT
  Age: 60 Year
  Sex: Female

DRUGS (1)
  1. GLIFAGE XR [Suspect]
     Indication: DIABETES MELLITUS
     Dosage: tabs at night
     Dates: start: 20120601

REACTIONS (3)
  - Device dislocation [Not Recovered/Not Resolved]
  - Urinary tract infection bacterial [Not Recovered/Not Resolved]
  - Medication residue [Not Recovered/Not Resolved]
